FAERS Safety Report 5479484-6 (Version None)
Quarter: 2007Q3

REPORT INFORMATION
  Report Type: 
  Country: None (occurrence: None)
  Receive Date: 20070913
  Receipt Date: 20070104
  Transmission Date: 20080115
  Serious: Yes (Hospitalization, Other)
  Sender: FDA-Public Use
  Company Number: 33430

PATIENT
  Age: 62 Year
  Sex: Female
  Weight: 58.9676 kg

DRUGS (13)
  1. PACLITAXEL [Suspect]
     Indication: BREAST CANCER
     Dosage: 60MG/M2/IV/WEEKLY
     Route: 042
     Dates: start: 20061011, end: 20061129
  2. SYNTHROID [Concomitant]
  3. ALTACE [Concomitant]
  4. CALCIUM [Concomitant]
  5. TOPROL-XL [Concomitant]
  6. ZETIA [Concomitant]
  7. CRESTOR [Concomitant]
  8. PLAVIX [Concomitant]
  9. ASPIRIN [Concomitant]
  10. GLUCOSAMINE [Concomitant]
  11. FISH OIL [Concomitant]
  12. GLUTAMINE [Concomitant]
  13. TYLENOL [Concomitant]

REACTIONS (1)
  - PNEUMONITIS [None]
